FAERS Safety Report 15221808 (Version 1)
Quarter: 2018Q3

REPORT INFORMATION
  Report Type: Spontaneous
  Country: US (occurrence: US)
  Receive Date: 20180731
  Receipt Date: 20180731
  Transmission Date: 20181010
  Serious: Yes (Hospitalization)
  Sender: FDA-Public Use
  Company Number: US-MYLANLABS-2018M1057164

PATIENT
  Age: 69 Year
  Sex: Female

DRUGS (3)
  1. LITHIUM. [Suspect]
     Active Substance: LITHIUM
     Indication: BIPOLAR DISORDER
     Route: 065
  2. ALENDRONATE [Concomitant]
     Active Substance: ALENDRONATE SODIUM
     Indication: OSTEOPOROSIS
     Route: 065
     Dates: start: 2011
  3. TERIPARATIDE [Interacting]
     Active Substance: TERIPARATIDE
     Indication: OSTEOPOROSIS
     Route: 065

REACTIONS (6)
  - Hyperparathyroidism [Unknown]
  - Drug interaction [Unknown]
  - Tremor [Unknown]
  - Hypercalcaemia [Recovered/Resolved]
  - Cogwheel rigidity [Unknown]
  - Muscle rigidity [Unknown]
